FAERS Safety Report 4278384-7 (Version None)
Quarter: 2004Q1

REPORT INFORMATION
  Report Type: 
  Country: None (occurrence: None)
  Receive Date: 20040123
  Receipt Date: 20040114
  Transmission Date: 20041129
  Serious: Yes (Disabling)
  Sender: FDA-Public Use
  Company Number: GB-ROCHE-356160

PATIENT
  Age: 69 Year
  Sex: Female
  Weight: 58 kg

DRUGS (1)
  1. IBANDRONIC ACID [Suspect]
     Dosage: OVER 15 MINS
     Route: 042
     Dates: start: 20040113, end: 20040113

REACTIONS (3)
  - APHASIA [None]
  - DYSKINESIA [None]
  - ORAL DYSAESTHESIA [None]
